FAERS Safety Report 6528796-3 (Version None)
Quarter: 2010Q1

REPORT INFORMATION
  Report Type: 
  Country: None (occurrence: None)
  Receive Date: 20100106
  Receipt Date: 20091129
  Transmission Date: 20100710
  Serious: No
  Sender: FDA-Public Use
  Company Number: US-BAYER-200917307BCC

PATIENT
  Age: 36 Year
  Sex: Female

DRUGS (1)
  1. MIDOL [Suspect]
     Indication: MUSCLE SPASMS
     Dosage: TOTAL DAILY DOSE: 880 MG  UNIT DOSE: 220 MG
     Route: 048
     Dates: start: 20091128

REACTIONS (4)
  - DIZZINESS [None]
  - FEELING JITTERY [None]
  - INSOMNIA [None]
  - PANIC ATTACK [None]
